FAERS Safety Report 4940274-1 (Version None)
Quarter: 2006Q1

REPORT INFORMATION
  Report Type: 
  Country: None (occurrence: None)
  Receive Date: 20060310
  Receipt Date: 20051207
  Transmission Date: 20060701
  Serious: Yes (Other)
  Sender: FDA-Public Use
  Company Number: US-MERCK-0512USA01401

PATIENT
  Age: 57 Year
  Sex: Female
  Weight: 107 kg

DRUGS (2)
  1. VIOXX [Suspect]
     Route: 048
     Dates: start: 19990101, end: 20030901
  2. TYLENOL (CAPLET) [Concomitant]
     Route: 065

REACTIONS (2)
  - MYOCARDIAL INFARCTION [None]
  - SKIN IRRITATION [None]
